FAERS Safety Report 9836836 (Version 3)
Quarter: 2014Q1

REPORT INFORMATION
  Report Type: Spontaneous
  Country: US (occurrence: US)
  Receive Date: 20140123
  Receipt Date: 20140219
  Transmission Date: 20141002
  Serious: No
  Sender: FDA-Public Use
  Company Number: US-PFIZER INC-2014016811

PATIENT
  Age: 70 Year
  Sex: Male
  Weight: 104.31 kg

DRUGS (7)
  1. SUTENT [Suspect]
     Indication: RENAL CANCER
     Dosage: 50 MG, CYCLIC (DAILY)
  2. PROZAC [Concomitant]
     Dosage: UNK
  3. METFORMIN [Concomitant]
     Dosage: UNK
  4. NOVOLOG [Concomitant]
     Dosage: UNK
  5. LANTUS [Concomitant]
     Dosage: UNK
  6. ALEVE [Concomitant]
     Dosage: UNK
  7. STOOL SOFTENER [Concomitant]
     Dosage: UNK

REACTIONS (8)
  - Disease progression [Unknown]
  - Renal cancer [Unknown]
  - Dry mouth [Unknown]
  - Dysgeusia [Not Recovered/Not Resolved]
  - Nausea [Unknown]
  - Vomiting [Unknown]
  - Constipation [Unknown]
  - Arthropathy [Unknown]
